FAERS Safety Report 5045787-2 (Version None)
Quarter: 2006Q3

REPORT INFORMATION
  Report Type: 
  Country: None (occurrence: None)
  Receive Date: 20060710
  Receipt Date: 20060704
  Transmission Date: 20061208
  Serious: Yes (Life-Threatening, Hospitalization)
  Sender: FDA-Public Use
  Company Number: PHBS2006PT10096

PATIENT
  Age: 71 Year
  Sex: Female

DRUGS (9)
  1. METFORMIN HCL [Concomitant]
     Route: 048
  2. METAMIZOLE MAGNESIUM [Concomitant]
     Route: 048
     Dates: start: 20060327
  3. CINNARIZINE [Concomitant]
     Dosage: 75 MG/D
     Route: 048
  4. LEVOTHYROXINE SODIUM [Concomitant]
     Route: 048
  5. DICLOFENAC SODIUM [Concomitant]
     Dosage: 100 MG/D
     Route: 048
     Dates: start: 20060327
  6. LOVASTATINA [Concomitant]
     Dosage: 20 MG/D
     Route: 048
  7. NIMODIPINE [Concomitant]
     Dosage: 30 MG/D
     Route: 048
  8. OMEPRAZOLE [Concomitant]
     Dosage: 40 MG/D
     Route: 048
     Dates: start: 20060327
  9. FEMARA [Suspect]
     Dosage: 2.5 MG, QD
     Route: 048
     Dates: start: 20060126, end: 20060508

REACTIONS (4)
  - ANAEMIA [None]
  - ASTHENIA [None]
  - HAEMOGLOBIN DECREASED [None]
  - THROMBOCYTOPENIA [None]
